FAERS Safety Report 23802534 (Version 1)
Quarter: 2024Q2

REPORT INFORMATION
  Report Type: Spontaneous
  Country: IN (occurrence: IN)
  Receive Date: 20240501
  Receipt Date: 20240501
  Transmission Date: 20240716
  Serious: Yes (Other)
  Sender: FDA-Public Use
  Company Number: IN-SUN PHARMACEUTICAL INDUSTRIES LTD-2024R1-443315

PATIENT
  Age: 62 Year
  Sex: Male

DRUGS (5)
  1. ASPIRIN [Suspect]
     Active Substance: ASPIRIN
     Indication: Antiplatelet therapy
     Dosage: 75 MILLIGRAM, QD
     Route: 065
  2. CLOPIDOGREL [Suspect]
     Active Substance: CLOPIDOGREL BISULFATE
     Indication: Antiplatelet therapy
     Dosage: 75 MILLIGRAM, QD
     Route: 065
  3. PERINDOPRIL [Suspect]
     Active Substance: PERINDOPRIL
     Indication: Antiplatelet therapy
     Dosage: 4 MILLIGRAM, BID
     Route: 065
  4. ROSUVASTATIN [Suspect]
     Active Substance: ROSUVASTATIN
     Indication: Antiplatelet therapy
     Dosage: 20 MILLIGRAM, QD
     Route: 065
  5. INSULIN NOS [Suspect]
     Active Substance: INSULIN NOS
     Indication: Antiplatelet therapy
     Dosage: UNK
     Route: 065

REACTIONS (1)
  - Alien limb syndrome [Recovering/Resolving]
